FAERS Safety Report 8543038 (Version 3)
Quarter: 2013Q1

REPORT INFORMATION
  Report Type: Spontaneous
  Country: US (occurrence: US)
  Receive Date: 20120502
  Receipt Date: 20130214
  Transmission Date: 20140127
  Serious: No
  Sender: FDA-Public Use
  Company Number: US-ASTRAZENECA-2011SE25113

PATIENT
  Age: 49 Year
  Sex: Female

DRUGS (31)
  1. ENTOCORT EC [Suspect]
     Route: 048
  2. NEXIUM [Suspect]
     Route: 048
  3. PROMETHAZINE [Concomitant]
  4. CALCIUM [Concomitant]
  5. FOLIC ACID [Concomitant]
  6. VITAMIN A [Concomitant]
  7. VITAMIN B-12 [Concomitant]
  8. FEOSOL [Concomitant]
  9. VITAMIN E [Concomitant]
  10. VITAMIN C [Concomitant]
  11. ENTERIC COATED ASPIRIN [Concomitant]
     Indication: CARDIAC DISORDER
  12. DIGESTIVE ADVANTAGE [Concomitant]
     Indication: IRRITABLE BOWEL SYNDROME
  13. LOVAZA [Concomitant]
  14. HYDROCHLOROTHIAZIDE [Concomitant]
  15. ASACOL HD [Concomitant]
  16. METFORMIN ER [Concomitant]
     Indication: DIABETES MELLITUS
  17. CIPROFLOXACIN [Concomitant]
  18. METOPROLOL ER SUCCINATE [Concomitant]
  19. DIOVAN HCTZ [Concomitant]
     Indication: HYPERTENSION
  20. CRESTOR [Concomitant]
  21. HYDROXYZINE HCL [Concomitant]
  22. VICTOZA INJECTION [Concomitant]
     Indication: DIABETES MELLITUS
  23. POTASSIUM CL [Concomitant]
  24. DEPO PROVERA [Concomitant]
     Indication: OVARIAN CYST
  25. QVAR [Concomitant]
  26. METHOCARBAMOL [Concomitant]
  27. CIMZA [Concomitant]
  28. CYCLOBENZAPRINE [Concomitant]
  29. VITAMIN D [Concomitant]
  30. MULTIPLE VITAMINS [Concomitant]
  31. OMEGA-3 FISH OIL [Concomitant]

REACTIONS (2)
  - Migraine [Unknown]
  - Off label use [Unknown]
